FAERS Safety Report 19474526 (Version 1)
Quarter: 2021Q2

REPORT INFORMATION
  Report Type: Spontaneous
  Country: SK (occurrence: SK)
  Receive Date: 20210629
  Receipt Date: 20210629
  Transmission Date: 20210717
  Serious: Yes (Other)
  Sender: FDA-Public Use
  Company Number: SK-FRESENIUS KABI-FK202106489

PATIENT
  Age: 33 Year
  Sex: Female

DRUGS (4)
  1. CEFUROXIME (MANUFACTURER UNKNOWN) [Suspect]
     Active Substance: CEFUROXIME
     Indication: ANTIBIOTIC THERAPY
     Dosage: UNK
     Route: 065
  2. LINEZOLID (MANUFACTURER UNKNOWN) [Suspect]
     Active Substance: LINEZOLID
     Indication: ANTIBIOTIC THERAPY
     Dosage: UNK
     Route: 065
  3. AZATHIOPRINE. [Suspect]
     Active Substance: AZATHIOPRINE
     Indication: COLITIS ULCERATIVE
     Dosage: UNK
     Route: 065
  4. FLUCONAZOLE (MANUFACTURER UNKNOWN) [Suspect]
     Active Substance: FLUCONAZOLE
     Indication: CANDIDA INFECTION
     Dosage: UNK
     Route: 065

REACTIONS (5)
  - Blood bilirubin increased [Unknown]
  - Transaminases increased [Unknown]
  - Pancytopenia [Unknown]
  - Dysbiosis [Unknown]
  - Hepatic enzyme increased [Unknown]
